FAERS Safety Report 4591189-2 (Version None)
Quarter: 2005Q1

REPORT INFORMATION
  Report Type: 
  Country: None (occurrence: None)
  Receive Date: 20050225
  Receipt Date: 20041029
  Transmission Date: 20050727
  Serious: Yes (Life-Threatening)
  Sender: FDA-Public Use
  Company Number: US-MERCK-0410USA04453

PATIENT
  Age: 87 Year
  Sex: Female

DRUGS (2)
  1. ZETIA [Suspect]
     Route: 048
     Dates: end: 20040901
  2. PLAVIX [Concomitant]
     Route: 065

REACTIONS (7)
  - DIZZINESS [None]
  - EYE DISORDER [None]
  - OROPHARYNGEAL SWELLING [None]
  - SWELLING FACE [None]
  - SWOLLEN TONGUE [None]
  - TACHYCARDIA [None]
  - VISION BLURRED [None]
